FAERS Safety Report 6971469-3 (Version None)
Quarter: 2010Q3

REPORT INFORMATION
  Report Type: 
  Country: None (occurrence: None)
  Receive Date: 20100903
  Receipt Date: 20100820
  Transmission Date: 20110219
  Serious: Yes (Hospitalization)
  Sender: FDA-Public Use
  Company Number: 2010003601

PATIENT
  Age: 64 Year
  Sex: Female

DRUGS (9)
  1. ERLOTINIB HYDROCHLORIDE [Suspect]
     Indication: NON-SMALL CELL LUNG CANCER
     Dosage: 150 MG, QD), ORAL
     Route: 048
     Dates: start: 20080401
  2. BEVACIZUMAB [Suspect]
     Indication: NON-SMALL CELL LUNG CANCER
     Dosage: INTRAVENOUS
     Route: 042
     Dates: start: 20080109, end: 20080401
  3. LEXAPROO [Concomitant]
  4. XANAX [Concomitant]
  5. RITALIN (METYLPHENIDATE HYDROCHLORIDE) [Concomitant]
  6. PROTONIX [Concomitant]
  7. ZOMETA [Concomitant]
  8. PEMETREXED [Concomitant]
  9. OXYCONTIN [Concomitant]

REACTIONS (1)
  - HAEMOPTYSIS [None]
